FAERS Safety Report 10290017 (Version 4)
Quarter: 2014Q4

REPORT INFORMATION
  Report Type: Spontaneous
  Country: JP (occurrence: JP)
  Receive Date: 20140710
  Receipt Date: 20141128
  Transmission Date: 20150528
  Serious: Yes (Life-Threatening)
  Sender: FDA-Public Use
  Company Number: JP-ASTRAZENECA-2014SE35227

PATIENT
  Age: 77 Year
  Sex: Male

DRUGS (24)
  1. NYROZIN [Concomitant]
     Route: 042
     Dates: start: 20140323, end: 20140402
  2. MAGMITT [Concomitant]
     Active Substance: MAGNESIUM OXIDE
     Route: 048
  3. CRAVIT [Suspect]
     Active Substance: LEVOFLOXACIN
     Route: 065
     Dates: start: 20140411, end: 20140412
  4. MEROPEN [Suspect]
     Active Substance: MEROPENEM
     Indication: INFECTION
     Route: 042
     Dates: start: 20140330, end: 20140404
  5. MEROPEN [Suspect]
     Active Substance: MEROPENEM
     Indication: INFECTION
     Route: 042
     Dates: start: 20140405, end: 20140410
  6. FAMOTIDINE. [Concomitant]
     Active Substance: FAMOTIDINE
     Route: 042
     Dates: start: 20140323, end: 20140325
  7. POLAPREZINC [Concomitant]
     Route: 048
  8. SOLU-MEDROL [Concomitant]
     Active Substance: METHYLPREDNISOLONE SODIUM SUCCINATE
     Route: 042
     Dates: start: 20140412, end: 20140412
  9. VEEN-D [Concomitant]
     Active Substance: DEXTROSE
     Dates: start: 20140322, end: 20140402
  10. TAMSULOSIN HYDROCHLORIDE. [Concomitant]
     Active Substance: TAMSULOSIN HYDROCHLORIDE
     Route: 048
  11. NEXIUM [Concomitant]
     Active Substance: ESOMEPRAZOLE MAGNESIUM
     Route: 048
  12. SOLITA-T NO.3 [Concomitant]
     Dates: start: 20140322, end: 20140322
  13. CHLOR-TRIMETON [Concomitant]
     Active Substance: CHLORPHENIRAMINE MALEATE
     Dates: start: 20140412, end: 20140412
  14. MEROPEN [Suspect]
     Active Substance: MEROPENEM
     Indication: INFECTION
     Route: 042
     Dates: start: 20140329
  15. AVOLVE [Concomitant]
     Active Substance: DUTASTERIDE
     Route: 048
  16. SOLITA-T NO.1 [Concomitant]
     Dates: start: 20140322, end: 20140322
  17. CEFTRIAXONE SODIUM HYDRATE [Concomitant]
     Route: 042
     Dates: start: 20140328, end: 20140328
  18. UNSPECIFIED [Concomitant]
     Active Substance: UNSPECIFIED INGREDIENT
     Dates: start: 20140414, end: 20140415
  19. PHYSIO 35 [Concomitant]
     Active Substance: ELECTROLYTES NOS
     Dates: start: 20140323, end: 20140403
  20. FUROSEMIDE. [Concomitant]
     Active Substance: FUROSEMIDE
     Route: 042
     Dates: start: 20140324, end: 20140403
  21. OMEPRAL [Concomitant]
     Active Substance: OMEPRAZOLE
     Route: 042
     Dates: start: 20140326, end: 20140403
  22. BFLUID [Concomitant]
     Active Substance: AMINO ACIDS\DEXTROSE\ELECTROLYTES NOS\VITAMINS
     Dates: start: 20140323, end: 20140331
  23. BIOFERMIN R [Concomitant]
     Active Substance: BACILLUS SUBTILIS\LACTOBACILLUS ACIDOPHILUS\STREPTOCOCCUS FAECAIS
     Route: 048
     Dates: start: 20140412, end: 20140412
  24. GLYPHAGEN [Concomitant]
     Route: 042
     Dates: start: 20140414, end: 20140417

REACTIONS (2)
  - Drug eruption [Recovered/Resolved]
  - Acute generalised exanthematous pustulosis [Recovered/Resolved]

NARRATIVE: CASE EVENT DATE: 20140409
